FAERS Safety Report 18294451 (Version 1)
Quarter: 2020Q3

REPORT INFORMATION
  Report Type: Spontaneous
  Country: US (occurrence: US)
  Receive Date: 20200922
  Receipt Date: 20200922
  Transmission Date: 20201103
  Serious: Yes (Hospitalization)
  Sender: FDA-Public Use
  Company Number: None

PATIENT
  Age: 71 Year
  Sex: Female

DRUGS (4)
  1. LOSARTAN POT [Concomitant]
     Active Substance: LOSARTAN POTASSIUM
  2. CELEBREX [Concomitant]
     Active Substance: CELECOXIB
  3. METOPROL SUC [Concomitant]
  4. OLUMIANT [Suspect]
     Active Substance: BARICITINIB
     Indication: RHEUMATOID ARTHRITIS
     Route: 048
     Dates: start: 20200709

REACTIONS (2)
  - Rheumatoid arthritis [None]
  - Spinal operation [None]

NARRATIVE: CASE EVENT DATE: 20200921
